FAERS Safety Report 6258042-X (Version None)
Quarter: 2009Q3

REPORT INFORMATION
  Report Type: 
  Country: None (occurrence: None)
  Receive Date: 20090707
  Receipt Date: 20090702
  Transmission Date: 20100115
  Serious: Yes (Death)
  Sender: FDA-Public Use
  Company Number: US-JNJFOC-20090501408

PATIENT
  Age: 9 Year
  Sex: Female
  Weight: 30.39 kg

DRUGS (1)
  1. DURAGESIC-100 [Suspect]
     Indication: PROCEDURAL PAIN
     Route: 062

REACTIONS (3)
  - NARCOTIC INTOXICATION [None]
  - OFF LABEL USE [None]
  - RESPIRATORY FAILURE [None]
